FAERS Safety Report 11012807 (Version 1)
Quarter: 2015Q2

REPORT INFORMATION
  Report Type: Spontaneous
  Country: FR (occurrence: None)
  Receive Date: 20150409
  Receipt Date: 20150409
  Transmission Date: 20150821
  Serious: Yes (Other)
  Sender: FDA-Public Use
  Company Number: FR2015GSK042676

PATIENT
  Age: 58 Year
  Sex: Male

DRUGS (2)
  1. REYATAZ [Suspect]
     Active Substance: ATAZANAVIR SULFATE
     Indication: HIV INFECTION
     Dates: start: 20051024, end: 20141118
  2. KIVEXA [Suspect]
     Active Substance: ABACAVIR SULFATE\LAMIVUDINE
     Indication: HIV INFECTION
     Route: 048
     Dates: start: 20051024

REACTIONS (3)
  - Hydronephrosis [None]
  - Iatrogenic injury [None]
  - Acute kidney injury [None]

NARRATIVE: CASE EVENT DATE: 20141118
